FAERS Safety Report 7876139-5 (Version None)
Quarter: 2011Q4

REPORT INFORMATION
  Report Type: 
  Country: None (occurrence: None)
  Receive Date: 20111031
  Receipt Date: 20111024
  Transmission Date: 20120403
  Serious: Yes (Hospitalization)
  Sender: FDA-Public Use
  Company Number: RU-JNJFOC-20111003430

PATIENT
  Sex: Female
  Weight: 78 kg

DRUGS (3)
  1. PALIPERIDONE [Suspect]
     Indication: SCHIZOPHRENIA
     Route: 048
     Dates: start: 20100901, end: 20111007
  2. TRIHEXYPHENIDYL HCL [Concomitant]
     Indication: MUSCLE RIGIDITY
     Route: 048
  3. TRIHEXYPHENIDYL HCL [Concomitant]
     Indication: TREMOR
     Route: 048

REACTIONS (1)
  - SCHIZOPHRENIA [None]
